FAERS Safety Report 12524844 (Version 1)
Quarter: 2016Q3

REPORT INFORMATION
  Report Type: Report from Study
  Country: FR (occurrence: FR)
  Receive Date: 20160704
  Receipt Date: 20160704
  Transmission Date: 20161109
  Serious: Yes (Other)
  Sender: FDA-Public Use
  Company Number: PHHO2011FR024557

PATIENT
  Age: 53 Year
  Sex: Female
  Weight: 46 kg

DRUGS (4)
  1. VEXOL [Concomitant]
     Active Substance: RIMEXOLONE
     Indication: HERPES VIRUS INFECTION
     Dosage: 1 DF, QD
     Route: 047
     Dates: start: 1993
  2. ZELITREX [Concomitant]
     Active Substance: VALACYCLOVIR HYDROCHLORIDE
     Indication: HERPES VIRUS INFECTION
     Dosage: 500 MG, QD
     Route: 048
     Dates: start: 1993, end: 20110525
  3. ZELITREX [Concomitant]
     Active Substance: VALACYCLOVIR HYDROCHLORIDE
     Indication: CORNEAL GRAFT REJECTION
     Dosage: 500 MG, QD
     Route: 048
     Dates: start: 20110525
  4. TRAMETINIB [Suspect]
     Active Substance: TRAMETINIB
     Indication: MALIGNANT MELANOMA
     Dosage: 2 MG, QD
     Route: 048
     Dates: start: 20110421, end: 20110526

REACTIONS (1)
  - Corneal graft rejection [Recovered/Resolved with Sequelae]

NARRATIVE: CASE EVENT DATE: 20110525
